FAERS Safety Report 7917072-X (Version None)
Quarter: 2011Q4

REPORT INFORMATION
  Report Type: 
  Country: None (occurrence: None)
  Receive Date: 20111114
  Receipt Date: 20111102
  Transmission Date: 20120403
  Serious: Yes (Hospitalization)
  Sender: FDA-Public Use
  Company Number: ABR_00279_2011

PATIENT
  Age: 84 Year
  Sex: Male

DRUGS (11)
  1. TOLAX PROLONGED-RELEASE TABLET [Concomitant]
  2. PROCREN [Concomitant]
  3. METOPROLOL SUCCINATE [Concomitant]
  4. FUROSEMIDE [Concomitant]
  5. OMEPRAZOL /00661203/ [Concomitant]
  6. FERROUS SULFATE TAB [Concomitant]
  7. NITROGLYCERIN [Suspect]
     Indication: PRODUCT USED FOR UNKNOWN INDICATION
     Dosage: DF
     Dates: start: 20111106, end: 20111106
  8. PLAVIX [Concomitant]
  9. LIPITOR [Concomitant]
  10. ASPIRIN [Concomitant]
  11. MOVICOL /01625101/ [Concomitant]

REACTIONS (2)
  - SYNCOPE [None]
  - HYPOTENSION [None]
